FAERS Safety Report 23390963 (Version 2)
Quarter: 2024Q1

REPORT INFORMATION
  Report Type: Spontaneous
  Country: DE (occurrence: DE)
  Receive Date: 20240111
  Receipt Date: 20240228
  Transmission Date: 20240409
  Serious: Yes (Life-Threatening, Disabling, Other)
  Sender: FDA-Public Use
  Company Number: DE-BFARM-23010075

PATIENT
  Age: 52 Year
  Sex: Female
  Weight: 92 kg

DRUGS (2)
  1. OXYCODONE [Suspect]
     Active Substance: OXYCODONE\OXYCODONE HYDROCHLORIDE
     Indication: Myotonic dystrophy
     Dosage: 3 MILLIGRAM
     Route: 042
     Dates: start: 20221201
  2. OXYCODONE [Suspect]
     Active Substance: OXYCODONE\OXYCODONE HYDROCHLORIDE
     Indication: Pain
     Dosage: 3 MILLIGRAM
     Route: 042
     Dates: start: 20221202

REACTIONS (24)
  - Respiratory depression [Recovered/Resolved]
  - Paralysis [Not Recovered/Not Resolved]
  - Respiratory failure [Unknown]
  - Disability [Unknown]
  - Loss of consciousness [Unknown]
  - Peripheral paralysis [Recovering/Resolving]
  - Muscle contractions involuntary [Unknown]
  - Taste disorder [Unknown]
  - Hot flush [Unknown]
  - Oxygen saturation decreased [Unknown]
  - Trichorrhexis [Unknown]
  - Lacrimation disorder [Unknown]
  - Loss of personal independence in daily activities [Unknown]
  - Mobility decreased [Unknown]
  - Panic attack [Unknown]
  - Hair colour changes [Unknown]
  - Dry mouth [Unknown]
  - Erythema [Recovering/Resolving]
  - Pruritus [Recovering/Resolving]
  - Musculoskeletal disorder [Recovered/Resolved with Sequelae]
  - Arthralgia [Recovered/Resolved]
  - Hypokalaemia [Recovered/Resolved]
  - Myalgia [Recovered/Resolved]
  - Constipation [Recovered/Resolved]

NARRATIVE: CASE EVENT DATE: 20221201
